FAERS Safety Report 7641665-0 (Version None)
Quarter: 2011Q3

REPORT INFORMATION
  Report Type: 
  Country: None (occurrence: None)
  Receive Date: 20110728
  Receipt Date: 20110720
  Transmission Date: 20111222
  Serious: Yes (Hospitalization)
  Sender: FDA-Public Use
  Company Number: CA-GLAXOSMITHKLINE-A0937404A

PATIENT
  Sex: Male
  Weight: 113.6 kg

DRUGS (1)
  1. ADVAIR DISKUS 100/50 [Suspect]
     Indication: CHRONIC OBSTRUCTIVE PULMONARY DISEASE
     Dosage: 1PUFF TWICE PER DAY
     Route: 055
     Dates: start: 20060101

REACTIONS (13)
  - PNEUMONIA [None]
  - HERPES ZOSTER [None]
  - HEART RATE INCREASED [None]
  - THROAT TIGHTNESS [None]
  - HYPERHIDROSIS [None]
  - PRODUCTIVE COUGH [None]
  - FATIGUE [None]
  - EYE SWELLING [None]
  - HYPERSOMNIA [None]
  - TREMOR [None]
  - PAIN [None]
  - DYSPNOEA [None]
  - HEADACHE [None]
